FAERS Safety Report 8151681-0 (Version None)
Quarter: 2012Q1

REPORT INFORMATION
  Report Type: 
  Country: None (occurrence: None)
  Receive Date: 20120221
  Receipt Date: 20120208
  Transmission Date: 20120608
  Serious: Yes (Other)
  Sender: FDA-Public Use
  Company Number: DE-AMGEN-DEUCT2012009360

PATIENT
  Age: 27 Year
  Sex: Male
  Weight: 118 kg

DRUGS (4)
  1. CELEBREX [Concomitant]
     Indication: ANKYLOSING SPONDYLITIS
     Dosage: 200 MG, UNK
     Route: 048
     Dates: start: 20110101
  2. ETANERCEPT [Suspect]
     Indication: ANKYLOSING SPONDYLITIS
     Dosage: 25 MG, 2X/WEEK
     Dates: start: 20110120, end: 20120105
  3. BUDESONIDE [Concomitant]
     Indication: ASTHMA
     Dosage: 200 UG,  2X INHALATION
     Dates: start: 20110101
  4. BUDESONIDE [Concomitant]
     Indication: ASTHMA
     Dosage: UNK

REACTIONS (1)
  - SARCOIDOSIS [None]
